FAERS Safety Report 22260430 (Version 1)
Quarter: 2023Q2

REPORT INFORMATION
  Report Type: Report from Study
  Country: US (occurrence: US)
  Receive Date: 20230427
  Receipt Date: 20230427
  Transmission Date: 20230722
  Serious: Yes (Other)
  Sender: FDA-Public Use
  Company Number: US-ABBVIE-4742128

PATIENT
  Age: 67 Year
  Sex: Female

DRUGS (1)
  1. SKYRIZI [Suspect]
     Active Substance: RISANKIZUMAB-RZAA
     Indication: Psoriasis
     Route: 058
     Dates: start: 20210601

REACTIONS (6)
  - Clavicle fracture [Unknown]
  - Stress [Unknown]
  - Psoriasis [Unknown]
  - Road traffic accident [Recovering/Resolving]
  - Rib fracture [Unknown]
  - Sternal fracture [Unknown]

NARRATIVE: CASE EVENT DATE: 20221016
